FAERS Safety Report 4730694-2 (Version None)
Quarter: 2005Q3

REPORT INFORMATION
  Report Type: 
  Country: None (occurrence: None)
  Receive Date: 20050725
  Receipt Date: 20050329
  Transmission Date: 20060218
  Serious: Yes (Other)
  Sender: FDA-Public Use
  Company Number: USA050291790

PATIENT
  Age: 57 Year
  Sex: Female
  Weight: 65 kg

DRUGS (7)
  1. PROZAC [Suspect]
     Dosage: 40 MG
     Dates: start: 19950101
  2. STRATTERA [Suspect]
     Indication: ATTENTION DEFICIT/HYPERACTIVITY DISORDER
     Dosage: 80 MG DAY
     Dates: start: 20050101
  3. COLCHICINE [Concomitant]
  4. XANAX(ALPRAZOLAM DUM) [Concomitant]
  5. LORCET-HD [Concomitant]
  6. VISTARIL [Concomitant]
  7. DESIPRAMINE HCL [Concomitant]

REACTIONS (9)
  - ABDOMINAL PAIN UPPER [None]
  - CONVERSION DISORDER [None]
  - CRYING [None]
  - DRUG INEFFECTIVE [None]
  - FEELING ABNORMAL [None]
  - INSOMNIA [None]
  - OEDEMA PERIPHERAL [None]
  - PSYCHOMOTOR HYPERACTIVITY [None]
  - SUICIDAL IDEATION [None]
